FAERS Safety Report 4724357-7 (Version None)
Quarter: 2005Q3

REPORT INFORMATION
  Report Type: 
  Country: None (occurrence: None)
  Receive Date: 20050721
  Receipt Date: 20050707
  Transmission Date: 20060218
  Serious: No
  Sender: FDA-Public Use
  Company Number: 11774

PATIENT
  Sex: Female

DRUGS (3)
  1. CISPLATIN [Suspect]
     Indication: OLIGOMENORRHOEA
  2. VINBLASTINE [Suspect]
     Indication: OLIGOMENORRHOEA
  3. BLEOMYCIN [Suspect]
     Indication: OLIGOMENORRHOEA

REACTIONS (1)
  - OLIGOMENORRHOEA [None]
